FAERS Safety Report 8912900 (Version 1)
Quarter: 2012Q4

REPORT INFORMATION
  Report Type: 
  Country: US (occurrence: US)
  Receive Date: 20121116
  Receipt Date: 20121116
  Transmission Date: 20130627
  Serious: Yes (Other)
  Sender: FDA-Public Use
  Company Number: US-GLAXOSMITHKLINE-A1001114A

PATIENT
  Sex: Male

DRUGS (1)
  1. PAXIL [Suspect]
     Route: 048

REACTIONS (2)
  - Mydriasis [Unknown]
  - Haemorrhage [Unknown]
